FAERS Safety Report 24011348 (Version 1)
Quarter: 2024Q2

REPORT INFORMATION
  Report Type: Report from Study
  Country: DE (occurrence: DE)
  Receive Date: 20240625
  Receipt Date: 20240625
  Transmission Date: 20240716
  Serious: Yes (Other)
  Sender: FDA-Public Use
  Company Number: DE-JNJFOC-20230405958

PATIENT
  Age: 15 Year
  Sex: Female

DRUGS (3)
  1. REMICADE [Suspect]
     Active Substance: INFLIXIMAB
     Indication: Crohn^s disease
     Route: 041
     Dates: start: 20090317, end: 20091118
  2. REMICADE [Suspect]
     Active Substance: INFLIXIMAB
     Route: 041
     Dates: start: 20100219, end: 20100219
  3. REMICADE [Suspect]
     Active Substance: INFLIXIMAB
     Route: 041
     Dates: start: 20100413, end: 20100413

REACTIONS (6)
  - Diarrhoea haemorrhagic [Unknown]
  - Rectal stenosis [Unknown]
  - Flatulence [Unknown]
  - Iron deficiency [Unknown]
  - Regurgitation [Unknown]
  - Rectal tenesmus [Unknown]

NARRATIVE: CASE EVENT DATE: 20130701
